FAERS Safety Report 6188591-4 (Version None)
Quarter: 2009Q2

REPORT INFORMATION
  Report Type: 
  Country: None (occurrence: None)
  Receive Date: 20090513
  Receipt Date: 20090506
  Transmission Date: 20091009
  Serious: Yes (Other)
  Sender: FDA-Public Use
  Company Number: A0782772A

PATIENT
  Age: 62 Year
  Sex: Female

DRUGS (5)
  1. ADVAIR HFA [Suspect]
     Indication: CHRONIC OBSTRUCTIVE PULMONARY DISEASE
     Dosage: 1PUFF TWICE PER DAY
     Route: 055
     Dates: start: 19990101
  2. SPIRIVA [Concomitant]
  3. ACTONEL [Concomitant]
  4. PROTONIX [Concomitant]
  5. XOPENEX [Concomitant]

REACTIONS (4)
  - CATARACT [None]
  - HERPES OPHTHALMIC [None]
  - IMPAIRED HEALING [None]
  - VISION BLURRED [None]
